FAERS Safety Report 8820649 (Version 1)
Quarter: 2012Q4

REPORT INFORMATION
  Report Type: 
  Country: ES (occurrence: ES)
  Receive Date: 20121002
  Receipt Date: 20121002
  Transmission Date: 20130627
  Serious: Yes (Other)
  Sender: FDA-Public Use
  Company Number: ES-JNJFOC-20120912956

PATIENT
  Age: 76 Year
  Sex: Female

DRUGS (1)
  1. ZALDAIR [Suspect]
     Indication: BACK PAIN
     Route: 048
     Dates: start: 2012, end: 2012

REACTIONS (1)
  - Epilepsy [Recovered/Resolved]
